FAERS Safety Report 25736852 (Version 1)
Quarter: 2025Q3

REPORT INFORMATION
  Report Type: Spontaneous
  Country: CN (occurrence: CN)
  Receive Date: 20250828
  Receipt Date: 20250828
  Transmission Date: 20251021
  Serious: Yes (Death, Other)
  Sender: Kenvue
  Company Number: CN-KENVUE-20250807917

PATIENT

DRUGS (1)
  1. LOPERAMIDE [Suspect]
     Active Substance: LOPERAMIDE
     Indication: Product used for unknown indication
     Route: 065

REACTIONS (7)
  - Arrhythmia [Fatal]
  - Cardiac arrest [Fatal]
  - Syncope [Fatal]
  - Torsade de pointes [Fatal]
  - Overdose [Fatal]
  - Electrocardiogram QT prolonged [Fatal]
  - Electrocardiogram QRS complex prolonged [Fatal]
